FAERS Safety Report 7084278-4 (Version None)
Quarter: 2010Q4

REPORT INFORMATION
  Report Type: 
  Country: None (occurrence: None)
  Receive Date: 20101104
  Receipt Date: 20101028
  Transmission Date: 20110411
  Serious: Yes (Other)
  Sender: FDA-Public Use
  Company Number: CN-PFIZER INC-2010137001

PATIENT
  Age: 62 Year
  Sex: Female

DRUGS (6)
  1. ZYVOX [Suspect]
     Indication: PYREXIA
     Dosage: UNK
     Route: 041
     Dates: start: 20101027
  2. ZYVOX [Suspect]
     Indication: BACTERIAL TEST POSITIVE
  3. DIFLUCAN [Concomitant]
     Route: 048
  4. RIFAPENTINE [Concomitant]
     Route: 048
  5. ETHAMBUTOL [Concomitant]
     Route: 048
  6. PYRAZINAMIDE [Concomitant]
     Route: 048

REACTIONS (2)
  - CHEST DISCOMFORT [None]
  - HYPOAESTHESIA ORAL [None]
